FAERS Safety Report 10902633 (Version 3)
Quarter: 2022Q1

REPORT INFORMATION
  Report Type: Spontaneous
  Country: GB (occurrence: GB)
  Receive Date: 20150310
  Receipt Date: 20220321
  Transmission Date: 20220424
  Serious: Yes (Other)
  Sender: FDA-Public Use
  Company Number: PHHY2015GB024812

PATIENT
  Age: 1 Year
  Sex: Female

DRUGS (16)
  1. CODEINE PHOSPHATE [Suspect]
     Active Substance: CODEINE PHOSPHATE
     Indication: Foetal exposure during pregnancy
     Dosage: 4 MG, QD
     Route: 064
  2. CODEINE PHOSPHATE [Suspect]
     Active Substance: CODEINE PHOSPHATE
     Dosage: UNK UNK, QID
     Route: 064
  3. CODEINE PHOSPHATE [Suspect]
     Active Substance: CODEINE PHOSPHATE
     Dosage: 16 MG, QD
     Route: 064
  4. COCODAMOL [Suspect]
     Active Substance: ACETAMINOPHEN\CODEINE PHOSPHATE
     Indication: Foetal exposure during pregnancy
     Dosage: (MATERNAL DOSE: UNKNOWN)
     Route: 064
  5. COCODAMOL [Suspect]
     Active Substance: ACETAMINOPHEN\CODEINE PHOSPHATE
     Dosage: (MATERNAL DOSE: 4MG QD)
     Route: 064
  6. COCODAMOL [Suspect]
     Active Substance: ACETAMINOPHEN\CODEINE PHOSPHATE
     Dosage: (MATERNAL DOSE: 16 MG, QD (4, QID, GESTATION PERIOD: 2 (TRIMESTER)
     Route: 064
  7. COCODAMOL [Suspect]
     Active Substance: ACETAMINOPHEN\CODEINE PHOSPHATE
     Dosage: UNK
     Route: 064
  8. ACETAMINOPHEN [Suspect]
     Active Substance: ACETAMINOPHEN
     Indication: Foetal exposure during pregnancy
     Dosage: (MATERNAL DOSE: UNKNOWN)
     Route: 064
  9. ACETAMINOPHEN [Suspect]
     Active Substance: ACETAMINOPHEN
     Dosage: (MATERNAL DOSE: 4MG QD)
     Route: 064
  10. ACETAMINOPHEN [Suspect]
     Active Substance: ACETAMINOPHEN
     Dosage: (MATERNAL DOSE: 4 MG QID)
     Route: 064
  11. ACETAMINOPHEN [Suspect]
     Active Substance: ACETAMINOPHEN
     Dosage: (MATERNAL DOSE: 16MG QD, FOUR DOSES A DAY)
     Route: 064
  12. ACETAMINOPHEN [Suspect]
     Active Substance: ACETAMINOPHEN
     Dosage: UNK
     Route: 064
  13. CEPHRADINE [Concomitant]
     Active Substance: CEPHRADINE
     Indication: Foetal exposure during pregnancy
     Dosage: UNK
     Route: 064
  14. ENOXAPARIN [Concomitant]
     Active Substance: ENOXAPARIN
     Indication: Foetal exposure during pregnancy
     Dosage: UNK
     Route: 064
  15. FLUOXETINE [Concomitant]
     Active Substance: FLUOXETINE HYDROCHLORIDE
     Indication: Foetal exposure during pregnancy
     Dosage: UNK
     Route: 064
  16. METRONIDAZOLE [Concomitant]
     Active Substance: METRONIDAZOLE
     Indication: Foetal exposure during pregnancy
     Dosage: UNK
     Route: 064

REACTIONS (12)
  - Dependence [Unknown]
  - Gait inability [Unknown]
  - Heart rate irregular [Unknown]
  - Premature baby [Unknown]
  - Hepatic function abnormal [Unknown]
  - Jaundice [Unknown]
  - Tremor [Unknown]
  - Developmental delay [Unknown]
  - Aphasia [Unknown]
  - Malaise [Unknown]
  - Foetal exposure during pregnancy [Unknown]
  - Overdose [Unknown]
